FAERS Safety Report 14320272 (Version 1)
Quarter: 2017Q4

REPORT INFORMATION
  Report Type: Spontaneous
  Country: US (occurrence: US)
  Receive Date: 20171222
  Receipt Date: 20171222
  Transmission Date: 20180321
  Serious: No
  Sender: FDA-Public Use
  Company Number: None

PATIENT
  Age: 25 Year
  Sex: Female
  Weight: 103.5 kg

DRUGS (6)
  1. VENLAFAXINE HCL ER 225MG [Suspect]
     Active Substance: VENLAFAXINE HYDROCHLORIDE
     Indication: MAJOR DEPRESSION
     Dosage: ?          QUANTITY:1 TABLET(S);?
     Route: 048
     Dates: start: 20150601
  2. MOFAFINIL [Concomitant]
  3. FISH OIL [Concomitant]
     Active Substance: FISH OIL
  4. LISINOPRIL. [Concomitant]
     Active Substance: LISINOPRIL
  5. NORG-ETHIN EST [Concomitant]
  6. BUPROPION. [Concomitant]
     Active Substance: BUPROPION

REACTIONS (2)
  - Hallucination, visual [None]
  - Withdrawal syndrome [None]

NARRATIVE: CASE EVENT DATE: 20171222
